FAERS Safety Report 7594026-7 (Version None)
Quarter: 2011Q3

REPORT INFORMATION
  Report Type: 
  Country: None (occurrence: None)
  Receive Date: 20110706
  Receipt Date: 20110627
  Transmission Date: 20111222
  Serious: Yes (Other)
  Sender: FDA-Public Use
  Company Number: US-ASTRAZENECA-2008UW27097

PATIENT
  Age: 54 Year
  Sex: Female
  Weight: 68 kg

DRUGS (5)
  1. SEROQUEL [Suspect]
     Route: 048
  2. DEPAKOTE [Concomitant]
  3. WELLBUTRIN SR [Concomitant]
  4. SEROQUEL [Suspect]
     Dosage: MORNING AND EVENING
     Route: 048
     Dates: start: 20051220
  5. CLONAZEPAM [Concomitant]

REACTIONS (2)
  - ROAD TRAFFIC ACCIDENT [None]
  - DUPUYTREN'S CONTRACTURE [None]
